FAERS Safety Report 14268301 (Version 1)
Quarter: 2017Q4

REPORT INFORMATION
  Report Type: Report from Study
  Country: GB (occurrence: GB)
  Receive Date: 20171211
  Receipt Date: 20171211
  Transmission Date: 20180321
  Serious: Yes (Other)
  Sender: FDA-Public Use
  Company Number: GB-MYLANLABS-2017M1076828

PATIENT
  Age: 82 Year
  Sex: Male

DRUGS (4)
  1. EPLERENONE. [Suspect]
     Active Substance: EPLERENONE
     Indication: LEFT VENTRICULAR FAILURE
     Dosage: 50 MG, QD
     Route: 048
     Dates: start: 20160815, end: 20171004
  2. CANDESARTAN. [Suspect]
     Active Substance: CANDESARTAN
     Indication: LEFT VENTRICULAR FAILURE
     Dosage: 16 MG, QD
     Route: 048
     Dates: start: 20121015, end: 20171004
  3. UMECLIDINIUM BROMIDE INHALATION POWDER [Suspect]
     Active Substance: UMECLIDINIUM BROMIDE
     Indication: CHRONIC OBSTRUCTIVE PULMONARY DISEASE
     Dosage: UNK
  4. BUMETANIDE. [Suspect]
     Active Substance: BUMETANIDE
     Indication: LEFT VENTRICULAR FAILURE
     Dosage: 1 MG, BID
     Route: 048
     Dates: start: 20161007, end: 20171004

REACTIONS (1)
  - Acute kidney injury [Recovered/Resolved]

NARRATIVE: CASE EVENT DATE: 20170901
